FAERS Safety Report 18756398 (Version 4)
Quarter: 2021Q1

REPORT INFORMATION
  Report Type: Spontaneous
  Country: AR (occurrence: AR)
  Receive Date: 20210119
  Receipt Date: 20210216
  Transmission Date: 20210419
  Serious: Yes (Death, Hospitalization)
  Sender: FDA-Public Use
  Company Number: AR-PFIZER INC-2021033924

PATIENT
  Sex: Female

DRUGS (1)
  1. IBRANCE [Suspect]
     Active Substance: PALBOCICLIB
     Dosage: UNK

REACTIONS (10)
  - Death [Fatal]
  - Cerebrovascular accident [Unknown]
  - Liver disorder [Unknown]
  - Hypertension [Unknown]
  - Illness [Unknown]
  - Malaise [Unknown]
  - Tremor [Unknown]
  - Abdominal discomfort [Unknown]
  - Muscle spasms [Unknown]
  - Pyrexia [Unknown]

NARRATIVE: CASE EVENT DATE: 202012
